FAERS Safety Report 4415869-4 (Version None)
Quarter: 2004Q3

REPORT INFORMATION
  Report Type: 
  Country: None (occurrence: None)
  Receive Date: 20040805
  Receipt Date: 20040412
  Transmission Date: 20050211
  Serious: No
  Sender: FDA-Public Use
  Company Number: US-GLAXOSMITHKLINE-A0506835A

PATIENT
  Age: 58 Year
  Sex: Male

DRUGS (4)
  1. AVANDAMET [Suspect]
     Route: 048
     Dates: start: 20040201
  2. LOTREL [Concomitant]
  3. AMARYL [Concomitant]
  4. LIPITOR [Concomitant]

REACTIONS (1)
  - MICROALBUMINURIA [None]
